FAERS Safety Report 11630291 (Version 1)
Quarter: 2015Q4

REPORT INFORMATION
  Report Type: Not Available
  Country: TW (occurrence: TW)
  Receive Date: 20151014
  Receipt Date: 20151014
  Transmission Date: 20160304
  Serious: Yes (Life-Threatening, Hospitalization)
  Sender: FDA-Public Use
  Company Number: TW-ANIPHARMA-2015-TW-000001

PATIENT
  Age: 58 Year
  Sex: Female

DRUGS (1)
  1. ALPRAZOLAM (NON-SPECIFIC) [Suspect]
     Active Substance: ALPRAZOLAM
     Dosage: 15 MG
     Route: 048

REACTIONS (2)
  - Coma [Unknown]
  - Pulmonary embolism [Unknown]
